FAERS Safety Report 12177775 (Version 6)
Quarter: 2016Q3

REPORT INFORMATION
  Report Type: Report from Study
  Country: US (occurrence: US)
  Receive Date: 20160314
  Receipt Date: 20160906
  Transmission Date: 20161109
  Serious: Yes (Other)
  Sender: FDA-Public Use
  Company Number: US-BAYER-2016-043940

PATIENT
  Age: 61 Year
  Sex: Male

DRUGS (3)
  1. STIVARGA [Suspect]
     Active Substance: REGORAFENIB
     Indication: EYELID DEGENERATIVE DISORDER
     Dosage: 40 MG, BID, TAKE 1 TABLET BY MOUTH TWICE A DAY
     Route: 048
     Dates: start: 20151113, end: 20160712
  2. STIVARGA [Suspect]
     Active Substance: REGORAFENIB
     Indication: HEPATIC CANCER
     Dosage: 160 MG, QD (160 MG, QD 3 WEEKS ON, THEN 1 WEEK OFF REPEAT)
     Route: 048
  3. STIVARGA [Suspect]
     Active Substance: REGORAFENIB
     Indication: CHRONIC HEPATITIS C
     Dosage: 160 MG, QD (160 MG, QD 3 WEEKS ON, THEN 1 WEEK OFF REPEAT)
     Route: 048
     Dates: start: 2016

REACTIONS (8)
  - Nocturia [Not Recovered/Not Resolved]
  - Chromaturia [Not Recovered/Not Resolved]
  - Drug ineffective [None]
  - Fatigue [Not Recovered/Not Resolved]
  - Shunt occlusion [Recovered/Resolved]
  - Off label use [None]
  - Asthenia [None]
  - Fatigue [Not Recovered/Not Resolved]

NARRATIVE: CASE EVENT DATE: 20160801
